FAERS Safety Report 13203231 (Version 1)
Quarter: 2017Q1

REPORT INFORMATION
  Report Type: Other
  Country: NO (occurrence: NO)
  Receive Date: 20170209
  Receipt Date: 20170209
  Transmission Date: 20170428
  Serious: Yes (Death, Other)
  Sender: FDA-Public Use
  Company Number: NO-STRIDES ARCOLAB LIMITED-2017SP001505

PATIENT

DRUGS (2)
  1. SANDIMMUNE [Suspect]
     Active Substance: CYCLOSPORINE
     Indication: PRODUCT USED FOR UNKNOWN INDICATION
     Dosage: UNK
  2. METHOXSALEN. [Suspect]
     Active Substance: METHOXSALEN
     Indication: PRODUCT USED FOR UNKNOWN INDICATION
     Dosage: UNK

REACTIONS (8)
  - Fall [Recovered/Resolved]
  - Haemoglobin abnormal [Unknown]
  - Fatigue [Unknown]
  - Thrombocytopenia [Unknown]
  - Blood pressure abnormal [Unknown]
  - Pulmonary embolism [Fatal]
  - Microangiopathy [Unknown]
  - Traumatic haematoma [Not Recovered/Not Resolved]
